FAERS Safety Report 8489805-8 (Version None)
Quarter: 2012Q2

REPORT INFORMATION
  Report Type: 
  Country: None (occurrence: None)
  Receive Date: 20120626
  Receipt Date: 20120613
  Transmission Date: 20120825
  Serious: Yes (Other)
  Sender: FDA-Public Use
  Company Number: DK-INDICUS PHARMA-000005

PATIENT

DRUGS (1)
  1. METFORMIN HCL [Suspect]
     Indication: PRODUCT USED FOR UNKNOWN INDICATION

REACTIONS (5)
  - RENAL FAILURE [None]
  - METABOLIC ACIDOSIS [None]
  - HYPOTENSION [None]
  - LACTIC ACIDOSIS [None]
  - GASTROINTESTINAL DISORDER [None]
